FAERS Safety Report 5073833-9 (Version None)
Quarter: 2006Q3

REPORT INFORMATION
  Report Type: 
  Country: None (occurrence: None)
  Receive Date: 20060808
  Receipt Date: 20050602
  Transmission Date: 20061208
  Serious: No
  Sender: FDA-Public Use
  Company Number: US-AMGEN-KDL137354

PATIENT
  Age: 81 Year
  Sex: Male

DRUGS (6)
  1. PROCRIT [Suspect]
     Indication: ANAEMIA
  2. LEVOFLOXACIN [Concomitant]
  3. WARFARIN SODIUM [Concomitant]
  4. COUMADIN [Concomitant]
  5. EFFEXOR [Concomitant]
  6. LEVAQUIN [Concomitant]

REACTIONS (1)
  - RASH ERYTHEMATOUS [None]
